FAERS Safety Report 10154477 (Version 1)
Quarter: 2014Q2

REPORT INFORMATION
  Report Type: Spontaneous
  Country: NZ (occurrence: NZ)
  Receive Date: 20140506
  Receipt Date: 20140506
  Transmission Date: 20141212
  Serious: Yes (Death)
  Sender: FDA-Public Use
  Company Number: NZ-ELI_LILLY_AND_COMPANY-NZ201404009598

PATIENT
  Age: 41 Year
  Sex: Female

DRUGS (5)
  1. OLANZAPINE [Suspect]
     Indication: BIPOLAR DISORDER
     Dosage: UNK, UNKNOWN
     Route: 048
     Dates: end: 20120509
  2. AMITRIPTYLINE [Interacting]
     Indication: PRODUCT USED FOR UNKNOWN INDICATION
     Dosage: UNK, UNKNOWN
     Route: 048
     Dates: end: 20120509
  3. GABAPENTIN [Interacting]
     Indication: PAIN
     Dosage: UNK, UNKNOWN
     Route: 048
     Dates: start: 20120501, end: 20120509
  4. METHADONE [Interacting]
     Indication: PAIN
     Dosage: UNK, UNKNOWN
     Route: 048
     Dates: start: 20120503, end: 20120509
  5. QUETIAPINE [Interacting]
     Indication: BIPOLAR DISORDER
     Dosage: UNK, UNKNOWN
     Route: 048
     Dates: end: 20120509

REACTIONS (4)
  - Death [Fatal]
  - Dyspnoea [Unknown]
  - Hyperhidrosis [Unknown]
  - Drug interaction [Unknown]
